FAERS Safety Report 9327930 (Version 1)
Quarter: 2013Q2

REPORT INFORMATION
  Report Type: Spontaneous
  Country: US (occurrence: US)
  Receive Date: 20130604
  Receipt Date: 20130604
  Transmission Date: 20140414
  Serious: No
  Sender: FDA-Public Use
  Company Number: US-SANOFI-AVENTIS-2012SA041992

PATIENT
  Sex: 0

DRUGS (3)
  1. LANTUS [Suspect]
     Route: 058
  2. LANTUS [Suspect]
     Dosage: DOUBLE DOSE
     Route: 058
  3. APIDRA [Concomitant]

REACTIONS (4)
  - Fatigue [Unknown]
  - Poor quality sleep [Unknown]
  - Unevaluable event [Unknown]
  - Drug ineffective [Unknown]
